FAERS Safety Report 19642517 (Version 1)
Quarter: 2021Q3

REPORT INFORMATION
  Report Type: Spontaneous
  Country: DE (occurrence: DE)
  Receive Date: 20210731
  Receipt Date: 20210731
  Transmission Date: 20211014
  Serious: Yes (Other)
  Sender: FDA-Public Use
  Company Number: DE-ACCORD-233809

PATIENT
  Age: 42 Year
  Sex: Female
  Weight: 95.9 kg

DRUGS (12)
  1. LAMOTRIGINE. [Concomitant]
     Active Substance: LAMOTRIGINE
     Dates: start: 20200406
  2. FLUANXOL [Suspect]
     Active Substance: FLUPENTIXOL
     Indication: PRODUCT USED FOR UNKNOWN INDICATION
     Dates: start: 20200529, end: 20200608
  3. QUILONUM RETARD [Suspect]
     Active Substance: LITHIUM CARBONATE
     Indication: PRODUCT USED FOR UNKNOWN INDICATION
     Dates: start: 20191201, end: 20200624
  4. LACOSAMIDE. [Concomitant]
     Active Substance: LACOSAMIDE
     Dates: start: 20191201
  5. BRIVIACT [Concomitant]
     Active Substance: BRIVARACETAM
     Dates: start: 20200609, end: 20200614
  6. AKINETON [Concomitant]
     Active Substance: BIPERIDEN HYDROCHLORIDE
     Dates: start: 20191201, end: 20200608
  7. BRIVIACT [Concomitant]
     Active Substance: BRIVARACETAM
     Dates: start: 20191201, end: 20200608
  8. LEVOTHYROXINE. [Concomitant]
     Active Substance: LEVOTHYROXINE
     Dosage: WEDNESDAY AND SATURDAY
     Dates: start: 20191201
  9. AMISULPRIDE [Suspect]
     Active Substance: AMISULPRIDE
     Indication: PRODUCT USED FOR UNKNOWN INDICATION
     Dates: start: 20191201
  10. LEVOTHYROXINE. [Concomitant]
     Active Substance: LEVOTHYROXINE
     Dosage: MONDAY, TUESDAY, THURSDAY, FRIDAY, SUNDAY
     Dates: start: 20191201
  11. SERTRALINE [Suspect]
     Active Substance: SERTRALINE HYDROCHLORIDE
     Indication: PRODUCT USED FOR UNKNOWN INDICATION
     Dates: start: 20191201, end: 20200617
  12. FLUANXOL [Suspect]
     Active Substance: FLUPENTIXOL
     Indication: PRODUCT USED FOR UNKNOWN INDICATION
     Dates: start: 20200406, end: 20200528

REACTIONS (4)
  - Swelling face [Recovered/Resolved]
  - Fall [Recovered/Resolved]
  - Parkinsonism [Recovered/Resolved]
  - Skin abrasion [Recovered/Resolved]

NARRATIVE: CASE EVENT DATE: 20200530
